FAERS Safety Report 4799679-4 (Version None)
Quarter: 2005Q4

REPORT INFORMATION
  Report Type: 
  Country: None (occurrence: None)
  Receive Date: 20051013
  Receipt Date: 20050928
  Transmission Date: 20060501
  Serious: Yes (Hospitalization)
  Sender: FDA-Public Use
  Company Number: 2005135567

PATIENT
  Age: 76 Year
  Sex: Male

DRUGS (6)
  1. AMLODIPINE [Suspect]
     Indication: HYPERTENSION
     Dosage: (7.5 MG), ORAL
     Route: 048
     Dates: start: 20050803, end: 20050901
  2. GLICLAZIDE (GLICLAZIDE) [Suspect]
     Indication: DIABETES MELLITUS NON-INSULIN-DEPENDENT
     Dosage: 120 MG IN THE MORN, 80 MG IN EVEN., ORAL
     Route: 048
     Dates: start: 20050803, end: 20050828
  3. ATORVASTATIN CALCIUM [Concomitant]
  4. SENNA (SENNA) [Concomitant]
  5. ALFACALCIDOL (ALFACALCIDOL) [Concomitant]
  6. ACETAMINOPHEN [Concomitant]

REACTIONS (1)
  - PEMPHIGOID [None]
